FAERS Safety Report 19234114 (Version 1)
Quarter: 2021Q2

REPORT INFORMATION
  Report Type: Spontaneous
  Country: US (occurrence: US)
  Receive Date: 20210508
  Receipt Date: 20210508
  Transmission Date: 20210717
  Serious: No
  Sender: FDA-Public Use
  Company Number: US-SA-2021SA151437

PATIENT
  Sex: Female

DRUGS (9)
  1. COVID?19 VACCINE NOS. [Suspect]
     Active Substance: COVID-19 VACCINE NOS
     Indication: COVID-19 IMMUNISATION
     Dosage: 2 DOSES
  2. FISH OIL [Concomitant]
     Active Substance: FISH OIL
  3. TURMERIC CURCUMIN [CURCUMA LONGA] [Concomitant]
  4. AUBAGIO [Suspect]
     Active Substance: TERIFLUNOMIDE
     Indication: MULTIPLE SCLEROSIS
     Dosage: FREQUENCY: EVERY 2 TO 3 DAYS AS DIRECTED
     Route: 048
     Dates: start: 201511
  5. VITAMIN D3 [Concomitant]
     Active Substance: CHOLECALCIFEROL
  6. OSTEO BI?FLEX [ASCORBIC ACID;BOSWELLIA SERRATA RESIN;CHONDROITIN SULFA [Concomitant]
  7. NAC [ACETYLCYSTEINE] [Concomitant]
     Active Substance: ACETYLCYSTEINE
  8. MAGNESIUM [Concomitant]
     Active Substance: MAGNESIUM
  9. VITAMIN B12 [Concomitant]
     Active Substance: CYANOCOBALAMIN

REACTIONS (3)
  - Malaise [Unknown]
  - Off label use [Unknown]
  - Muscle spasms [Unknown]

NARRATIVE: CASE EVENT DATE: 201511
